FAERS Safety Report 11189662 (Version 14)
Quarter: 2018Q4

REPORT INFORMATION
  Report Type: Spontaneous
  Country: US (occurrence: US)
  Receive Date: 20150615
  Receipt Date: 20181008
  Transmission Date: 20190204
  Serious: Yes (Hospitalization, Other)
  Sender: FDA-Public Use
  Company Number: US-DSJP-DSU-2015-109641

PATIENT

DRUGS (8)
  1. BENICAR HCT [Suspect]
     Active Substance: HYDROCHLOROTHIAZIDE\OLMESARTAN MEDOXOMIL
     Dosage: 20-12.5 MG, QD
     Route: 048
  2. BENICAR HCT [Suspect]
     Active Substance: HYDROCHLOROTHIAZIDE\OLMESARTAN MEDOXOMIL
     Indication: PRODUCT USED FOR UNKNOWN INDICATION
     Dosage: 40MG/25 MG, QD
     Route: 048
     Dates: start: 20090227, end: 20101217
  3. BENICAR [Suspect]
     Active Substance: OLMESARTAN MEDOXOMIL
     Indication: HYPERTENSION
     Dosage: 40 MG, QD
     Route: 048
     Dates: start: 2009, end: 201102
  4. ADVIL (MEFENAMIC ACID) [Concomitant]
     Active Substance: MEFENAMIC ACID
     Dosage: 200 MG, QID
     Route: 048
  5. ANTIINFLAMMATORY AGENTS, NON-STEROIDS [Suspect]
     Active Substance: UNSPECIFIED INGREDIENT
     Dosage: UNK
  6. HYDROCHLOROTHIAZIDE. [Concomitant]
     Active Substance: HYDROCHLOROTHIAZIDE
     Indication: PRODUCT USED FOR UNKNOWN INDICATION
     Dosage: 20 MG, QD
  7. ADVIL (MEFENAMIC ACID) [Concomitant]
     Active Substance: MEFENAMIC ACID
     Indication: PRODUCT USED FOR UNKNOWN INDICATION
     Dosage: 200 MG, BID
     Route: 048
  8. HYDROCHLOROTHIAZIDE. [Concomitant]
     Active Substance: HYDROCHLOROTHIAZIDE
     Dosage: 25 MG, QD
     Route: 048
     Dates: start: 20120107

REACTIONS (15)
  - Pancreatitis [Unknown]
  - Intestinal mucosal atrophy [Unknown]
  - Colitis ulcerative [Unknown]
  - Coeliac disease [Not Recovered/Not Resolved]
  - Constipation [Unknown]
  - Hiatus hernia [Unknown]
  - Cholecystitis chronic [Recovered/Resolved]
  - Acute kidney injury [Unknown]
  - Reactive gastropathy [Unknown]
  - Sprue-like enteropathy [Recovering/Resolving]
  - Haematochezia [Unknown]
  - Diverticulum [Unknown]
  - Gastrooesophageal reflux disease [Unknown]
  - Iron deficiency anaemia [Not Recovered/Not Resolved]
  - Liver function test increased [Unknown]

NARRATIVE: CASE EVENT DATE: 2010
